FAERS Safety Report 15520148 (Version 1)
Quarter: 2018Q4

REPORT INFORMATION
  Report Type: Spontaneous
  Country: JP (occurrence: JP)
  Receive Date: 20181017
  Receipt Date: 20181017
  Transmission Date: 20190205
  Serious: Yes (Hospitalization, Other)
  Sender: FDA-Public Use
  Company Number: PHHY2018JP125465

PATIENT
  Age: 71 Year
  Sex: Male

DRUGS (1)
  1. BETAMETHASONE. [Suspect]
     Active Substance: BETAMETHASONE
     Indication: PRURITUS
     Dosage: 0.5 MG, QD
     Route: 048

REACTIONS (9)
  - Abdominal pain [Unknown]
  - Myalgia [Recovering/Resolving]
  - Pyrexia [Recovering/Resolving]
  - Adrenal insufficiency [Unknown]
  - Appetite disorder [Unknown]
  - Vomiting [Unknown]
  - Familial mediterranean fever [Recovering/Resolving]
  - Pleurisy [Unknown]
  - Skin atrophy [Unknown]
